FAERS Safety Report 5102895-5 (Version None)
Quarter: 2006Q3

REPORT INFORMATION
  Report Type: 
  Country: None (occurrence: None)
  Receive Date: 20060908
  Receipt Date: 20060828
  Transmission Date: 20061208
  Serious: Yes (Death, Other)
  Sender: FDA-Public Use
  Company Number: USA-2006-0025101

PATIENT
  Sex: Male

DRUGS (2)
  1. MORPHINE SULFATE [Suspect]
     Indication: PAIN
     Dosage: SEE IMAGE
  2. ALCOHOL (ETHANOL) [Suspect]
     Indication: DRUG ABUSER

REACTIONS (2)
  - COMPLETED SUICIDE [None]
  - SUBSTANCE ABUSE [None]
